FAERS Safety Report 4953185-2 (Version None)
Quarter: 2006Q1

REPORT INFORMATION
  Report Type: 
  Country: None (occurrence: None)
  Receive Date: 20060324
  Receipt Date: 20051208
  Transmission Date: 20060701
  Serious: Yes (Death, Hospitalization, Other)
  Sender: FDA-Public Use
  Company Number: US-MERCK-0512USA01527

PATIENT
  Age: 68 Year
  Sex: Male
  Weight: 91 kg

DRUGS (19)
  1. VIOXX [Suspect]
     Indication: ARTHRITIS
     Route: 048
     Dates: start: 20000320, end: 20041111
  2. VIOXX [Suspect]
     Route: 048
     Dates: start: 20000320, end: 20041111
  3. WARFARIN [Concomitant]
     Route: 065
  4. NORVASC [Concomitant]
     Route: 065
  5. GLIPIZIDE [Concomitant]
     Route: 065
  6. AVAPRO [Concomitant]
     Route: 065
  7. AMITRIPTYLINE PAMOATE [Concomitant]
     Route: 065
  8. VALDECOXIB [Concomitant]
     Route: 065
  9. COUMADIN [Concomitant]
     Route: 065
  10. ZITHROMAX [Concomitant]
     Route: 065
  11. AVANDIA [Concomitant]
     Route: 065
  12. PLAVIX [Concomitant]
     Route: 065
  13. MOBIC [Concomitant]
     Route: 065
  14. FAMVIR [Concomitant]
     Route: 065
  15. LEVAQUIN [Concomitant]
     Route: 065
  16. ULTRACET [Concomitant]
     Route: 065
  17. ANALGESIC OR ANESTHETIC (UNSPECIFIED) [Concomitant]
     Route: 065
  18. [THERAPY UNSPECIFIED] [Concomitant]
     Route: 065
  19. [THERAPY UNSPECIFIED] [Concomitant]
     Route: 065

REACTIONS (21)
  - ACUTE MYOCARDIAL INFARCTION [None]
  - ATRIAL FIBRILLATION [None]
  - CARDIAC OUTPUT DECREASED [None]
  - CAROTID ARTERY STENOSIS [None]
  - CEREBROVASCULAR ACCIDENT [None]
  - CHEST PAIN [None]
  - CORONARY ARTERY DISEASE [None]
  - CORONARY ARTERY OCCLUSION [None]
  - DIABETES MELLITUS INADEQUATE CONTROL [None]
  - FEELING ABNORMAL [None]
  - GANGRENE [None]
  - HEART RATE IRREGULAR [None]
  - HERPES ZOSTER [None]
  - HYPOTENSION [None]
  - LEUKOCYTOSIS [None]
  - LIVER FUNCTION TEST ABNORMAL [None]
  - MENTAL STATUS CHANGES [None]
  - MYOCARDIAL INFARCTION [None]
  - OEDEMA PERIPHERAL [None]
  - OVERDOSE [None]
  - PERIPHERAL VASCULAR DISORDER [None]
